FAERS Safety Report 4318085-X (Version None)
Quarter: 2004Q1

REPORT INFORMATION
  Report Type: 
  Country: None (occurrence: None)
  Receive Date: 20040315
  Receipt Date: 20040227
  Transmission Date: 20041129
  Serious: Yes (Hospitalization)
  Sender: FDA-Public Use
  Company Number: 188333

PATIENT
  Age: 58 Year
  Sex: Female
  Weight: 69.8539 kg

DRUGS (4)
  1. AVONEX [Suspect]
     Indication: MULTIPLE SCLEROSIS
     Dosage: 30 MCG QW IM
     Route: 030
     Dates: start: 19980101, end: 20000101
  2. ASPIRIN [Concomitant]
  3. IBUPROFEN [Concomitant]
  4. CALCIUM [Concomitant]

REACTIONS (16)
  - AMNESIA [None]
  - APHASIA [None]
  - ASTHENIA [None]
  - BLOOD CHOLESTEROL INCREASED [None]
  - DIABETES MELLITUS NON-INSULIN-DEPENDENT [None]
  - DYSGRAPHIA [None]
  - FALL [None]
  - GASTROINTESTINAL GANGRENE [None]
  - HIATUS HERNIA [None]
  - HYPERTENSION [None]
  - IATROGENIC INJURY [None]
  - INTESTINAL PERFORATION [None]
  - POSTOPERATIVE WOUND COMPLICATION [None]
  - STRESS SYMPTOMS [None]
  - SUTURE RUPTURE [None]
  - TREMOR [None]
